FAERS Safety Report 9153793 (Version 6)
Quarter: 2015Q1

REPORT INFORMATION
  Report Type: Spontaneous
  Country: CH (occurrence: CH)
  Receive Date: 20130311
  Receipt Date: 20150224
  Transmission Date: 20150721
  Serious: Yes (Other)
  Sender: FDA-Public Use
  Company Number: CH-JNJFOC-20130217107

PATIENT

DRUGS (5)
  1. TACROLIMUS. [Suspect]
     Active Substance: TACROLIMUS
     Indication: COLITIS ULCERATIVE
     Route: 048
  2. INFLIXIMAB, RECOMBINANT [Suspect]
     Active Substance: INFLIXIMAB
     Indication: COLITIS ULCERATIVE
     Dosage: FREQUENCY AT 0, 2, 6 AND THEN EVERY 8 WEEKS.
     Route: 042
  3. AZATHIOPRINE. [Concomitant]
     Active Substance: AZATHIOPRINE
     Route: 065
  4. MERCAPTOPURINE. [Concomitant]
     Active Substance: MERCAPTOPURINE
     Route: 065
  5. METHOTREXATE [Concomitant]
     Active Substance: METHOTREXATE
     Route: 065

REACTIONS (18)
  - Deafness [Unknown]
  - Bronchospasm [Unknown]
  - Infection [Unknown]
  - Psoriasis [Unknown]
  - Colectomy [Unknown]
  - Lupus-like syndrome [Unknown]
  - Alopecia [Unknown]
  - Diarrhoea [Unknown]
  - Hypersensitivity [Unknown]
  - Therapeutic response decreased [Unknown]
  - Subcutaneous abscess [Unknown]
  - Herpes simplex [Unknown]
  - Rash [Unknown]
  - Cytomegalovirus colitis [Unknown]
  - Respiratory tract infection [Unknown]
  - Systemic lupus erythematosus [Unknown]
  - Dermatitis atopic [Unknown]
  - Erythema [Unknown]
